FAERS Safety Report 15739392 (Version 4)
Quarter: 2019Q1

REPORT INFORMATION
  Report Type: Report from Study
  Country: US (occurrence: US)
  Receive Date: 20181219
  Receipt Date: 20190219
  Transmission Date: 20190417
  Serious: Yes (Hospitalization)
  Sender: FDA-Public Use
  Company Number: US-PFIZER INC-2018488825

PATIENT
  Age: 92 Year
  Sex: Female

DRUGS (4)
  1. IBRANCE [Suspect]
     Active Substance: PALBOCICLIB
     Dosage: 100 MG, CYCLIC (100MG 21 DAYS ON, 7 DAYS OFF)
     Route: 048
     Dates: start: 20181119, end: 20181208
  2. IBRANCE [Suspect]
     Active Substance: PALBOCICLIB
     Indication: BREAST CANCER FEMALE
     Dosage: 100 MG, CYCLIC (100MG 21 DAYS ON, 7 DAYS OFF)
     Route: 048
     Dates: start: 20181112, end: 20181119
  3. IBRANCE [Suspect]
     Active Substance: PALBOCICLIB
     Dosage: 100 MG, CYCLIC (100MG 21 DAYS ON, 7 DAYS OFF)
     Route: 048
     Dates: start: 20181209
  4. IBRANCE [Suspect]
     Active Substance: PALBOCICLIB
     Dosage: 100 MG, CYCLIC (ONCE A DAY/21 DAYS ON, 7 DAYS OFF)
     Route: 048
     Dates: start: 20181101, end: 201901

REACTIONS (9)
  - Dyspnoea exertional [Unknown]
  - Hypocalcaemia [Unknown]
  - Impaired quality of life [Unknown]
  - Hypotension [Unknown]
  - Abnormal faeces [Unknown]
  - Accidental overdose [Unknown]
  - Asthenia [Unknown]
  - Diarrhoea [Recovered/Resolved]
  - Confusional state [Recovered/Resolved]

NARRATIVE: CASE EVENT DATE: 20181119
